FAERS Safety Report 5427619-3 (Version None)
Quarter: 2007Q3

REPORT INFORMATION
  Report Type: 
  Country: None (occurrence: None)
  Receive Date: 20070823
  Receipt Date: 20070808
  Transmission Date: 20080115
  Serious: Yes (Other)
  Sender: FDA-Public Use
  Company Number: GXKR2007CN06862

PATIENT

DRUGS (1)
  1. ASPIRIN [Suspect]
     Dosage: ORAL
     Route: 048

REACTIONS (4)
  - MOTOR DYSFUNCTION [None]
  - MUSCULAR WEAKNESS [None]
  - POST PROCEDURAL HAEMATOMA [None]
  - SPINAL CORD COMPRESSION [None]
